FAERS Safety Report 12322039 (Version 1)
Quarter: 2016Q2

REPORT INFORMATION
  Report Type: Spontaneous
  Country: CN (occurrence: CN)
  Receive Date: 20160502
  Receipt Date: 20160502
  Transmission Date: 20160815
  Serious: Yes (Hospitalization, Other)
  Sender: FDA-Public Use
  Company Number: CN-GLAXOSMITHKLINE-CN2016GSK059561

PATIENT
  Age: 42 Year
  Sex: Male
  Weight: 86 kg

DRUGS (2)
  1. VOLTAREN (DICLOFENAC DIETHYLAMMONIUM SALT [Suspect]
     Active Substance: DICLOFENAC DIETHYLAMINE
     Indication: GOUTY ARTHRITIS
     Dosage: 1 G, TID
     Route: 061
     Dates: start: 20151129, end: 20151202
  2. XINHUANG [Concomitant]
     Indication: PRODUCT USED FOR UNKNOWN INDICATION
     Dosage: UNK UNK, TID
     Route: 065

REACTIONS (6)
  - Flushing [Recovering/Resolving]
  - Skin reaction [Unknown]
  - Skin disorder [Unknown]
  - Dermatitis contact [None]
  - Pruritus [Recovering/Resolving]
  - Mucosa vesicle [Unknown]

NARRATIVE: CASE EVENT DATE: 20151129
